FAERS Safety Report 8365478-X (Version None)
Quarter: 2012Q2

REPORT INFORMATION
  Report Type: 
  Country: None (occurrence: None)
  Receive Date: 20120516
  Receipt Date: 20120510
  Transmission Date: 20120825
  Serious: Yes (Other)
  Sender: FDA-Public Use
  Company Number: PHHY2012ES040626

PATIENT

DRUGS (1)
  1. TACROLIMUS [Suspect]

REACTIONS (3)
  - LOCKED-IN SYNDROME [None]
  - ENCEPHALOPATHY [None]
  - CENTRAL NERVOUS SYSTEM LESION [None]
